FAERS Safety Report 23182460 (Version 2)
Quarter: 2023Q4

REPORT INFORMATION
  Report Type: Report from Study
  Country: US (occurrence: US)
  Receive Date: 20231114
  Receipt Date: 20231207
  Transmission Date: 20240110
  Serious: Yes (Other)
  Sender: FDA-Public Use
  Company Number: US-TAKEDA-2023TUS022355

PATIENT
  Sex: Female
  Weight: 68 kg

DRUGS (13)
  1. HUMAN IMMUNOGLOBULIN G [Suspect]
     Active Substance: HUMAN IMMUNOGLOBULIN G
     Indication: Immune system disorder
     Dosage: 8 GRAM, 1/WEEK
     Route: 058
     Dates: start: 20230126
  2. MODERNA COVID-19 VACCINE [Suspect]
     Active Substance: ELASOMERAN
     Indication: Product used for unknown indication
     Dosage: UNK
     Route: 065
  3. CLINDAMYCIN [Suspect]
     Active Substance: CLINDAMYCIN
     Indication: Product used for unknown indication
     Dosage: UNK
     Route: 065
  4. DIPHENHYDRAMINE [Concomitant]
     Active Substance: DIPHENHYDRAMINE
     Dosage: UNK
     Route: 065
  5. EPINEPHRINE [Concomitant]
     Active Substance: EPINEPHRINE
     Dosage: UNK
     Route: 065
  6. VITAMIN D3 [Concomitant]
     Active Substance: CHOLECALCIFEROL
     Dosage: UNK
     Route: 065
  7. CYTOMEL [Concomitant]
     Active Substance: LIOTHYRONINE SODIUM
     Dosage: UNK
     Route: 065
  8. PROVENTIL HFA [Concomitant]
     Active Substance: ALBUTEROL SULFATE
     Dosage: UNK
     Route: 065
  9. ACETAMINOPHEN [Concomitant]
     Active Substance: ACETAMINOPHEN
     Dosage: UNK
     Route: 065
  10. HYDROCORTISONE [Concomitant]
     Active Substance: HYDROCORTISONE
     Dosage: UNK
     Route: 065
  11. SYNTHROID [Concomitant]
     Active Substance: LEVOTHYROXINE SODIUM
     Dosage: UNK
     Route: 065
  12. PRASTERONE [Concomitant]
     Active Substance: PRASTERONE
     Dosage: UNK
     Route: 065
  13. DIPHENHYDRAMINE HYDROCHLORIDE [Concomitant]
     Active Substance: DIPHENHYDRAMINE HYDROCHLORIDE
     Dosage: UNK
     Route: 065

REACTIONS (22)
  - Colitis [Unknown]
  - Urinary tract infection [Unknown]
  - Weight decreased [Unknown]
  - Hyperaesthesia teeth [Unknown]
  - Oral pain [Unknown]
  - Dermatitis contact [Unknown]
  - Device leakage [Unknown]
  - Gastrointestinal disorder [Unknown]
  - Breast pain [Unknown]
  - Breast discharge [Unknown]
  - Heart rate increased [Recovering/Resolving]
  - Illness [Unknown]
  - Drug hypersensitivity [Not Recovered/Not Resolved]
  - Abdominal discomfort [Unknown]
  - Infusion site bruising [Unknown]
  - Migraine [Recovering/Resolving]
  - Infusion site erythema [Unknown]
  - Infusion site swelling [Unknown]
  - Pruritus [Unknown]
  - Infusion site pain [Unknown]
  - Nausea [Recovering/Resolving]
  - Headache [Recovering/Resolving]
